FAERS Safety Report 9023752 (Version 2)
Quarter: 2013Q1

REPORT INFORMATION
  Report Type: Report from Study
  Country: SE (occurrence: SE)
  Receive Date: 20130121
  Receipt Date: 20130204
  Transmission Date: 20140127
  Serious: Yes (Hospitalization)
  Sender: FDA-Public Use
  Company Number: SE-MYLANLABS-2013S1000829

PATIENT
  Age: 57 Year
  Sex: Male
  Weight: 71.5 kg

DRUGS (9)
  1. DICLOFENAC [Suspect]
     Indication: BACK PAIN
     Route: 048
     Dates: start: 20121126, end: 20121206
  2. BLINDED THERAPY [Suspect]
     Indication: HEPATITIS C
     Route: 048
     Dates: start: 20121030, end: 20121206
  3. TELAPREVIR [Suspect]
     Indication: HEPATITIS C
     Route: 048
     Dates: start: 20121030, end: 20121206
  4. PLACEBO [Suspect]
     Indication: HEPATITIS C
     Route: 048
     Dates: start: 20121030, end: 20121206
  5. PEGINTERFERON ALFA-2A [Suspect]
     Indication: HEPATITIS C
     Route: 058
     Dates: start: 20121030, end: 20121205
  6. RIBAVIRIN [Suspect]
     Indication: HEPATITIS C
     Dosage: 200+0+400
     Route: 048
     Dates: start: 20121030, end: 20121205
  7. METADON /00068902/ [Concomitant]
     Indication: PRODUCT USED FOR UNKNOWN INDICATION
     Route: 048
  8. ZOLPIDEM [Concomitant]
     Indication: INSOMNIA
     Route: 048
  9. INSULIN [Concomitant]
     Indication: DIABETES MELLITUS
     Route: 058
     Dates: start: 20121005

REACTIONS (8)
  - Hyperglycaemia [Recovered/Resolved]
  - Metabolic acidosis [Recovered/Resolved]
  - Renal failure [Recovered/Resolved]
  - Pneumonia [Recovering/Resolving]
  - Critical illness polyneuropathy [Recovering/Resolving]
  - Muscle haemorrhage [Recovered/Resolved]
  - Deep vein thrombosis [Recovering/Resolving]
  - Tendon rupture [Not Recovered/Not Resolved]
